FAERS Safety Report 15334197 (Version 2)
Quarter: 2018Q3

REPORT INFORMATION
  Report Type: Spontaneous
  Country: US (occurrence: US)
  Receive Date: 20180830
  Receipt Date: 20180904
  Transmission Date: 20181010
  Serious: Yes (Hospitalization, Other)
  Sender: FDA-Public Use
  Company Number: US-PFIZER INC-2018345827

PATIENT
  Age: 70 Year
  Sex: Female
  Weight: 94.8 kg

DRUGS (5)
  1. LYRICA [Suspect]
     Active Substance: PREGABALIN
     Indication: DIABETIC NEPHROPATHY
     Dosage: 75 MG, 2X/DAY
     Route: 048
     Dates: start: 201802
  2. COUMADIN [Concomitant]
     Active Substance: WARFARIN SODIUM
     Dosage: UNK
  3. PREDNISONE. [Concomitant]
     Active Substance: PREDNISONE
     Dosage: UNK
  4. LYRICA [Suspect]
     Active Substance: PREGABALIN
     Indication: NEUROPATHY PERIPHERAL
  5. LYRICA [Suspect]
     Active Substance: PREGABALIN
     Indication: FIBROMYALGIA
     Dosage: 150 MG, DAILY

REACTIONS (23)
  - Atrial fibrillation [Unknown]
  - Urinary tract infection [Unknown]
  - Loss of consciousness [Unknown]
  - Orthostatic hypotension [Unknown]
  - Acute kidney injury [Unknown]
  - Dry mouth [Not Recovered/Not Resolved]
  - Oedema [Unknown]
  - Increased appetite [Unknown]
  - Fall [Unknown]
  - Syncope [Unknown]
  - Laboratory test abnormal [Unknown]
  - Fatigue [Unknown]
  - Vision blurred [Unknown]
  - Diabetes mellitus [Unknown]
  - Disturbance in attention [Unknown]
  - Renal disorder [Unknown]
  - Distractibility [Unknown]
  - Constipation [Not Recovered/Not Resolved]
  - Dizziness [Unknown]
  - Weight increased [Unknown]
  - Flatulence [Unknown]
  - Bladder disorder [Unknown]
  - Liver function test increased [Unknown]

NARRATIVE: CASE EVENT DATE: 201802
